FAERS Safety Report 13447351 (Version 1)
Quarter: 2017Q2

REPORT INFORMATION
  Report Type: Spontaneous
  Country: US (occurrence: US)
  Receive Date: 20170416
  Receipt Date: 20170416
  Transmission Date: 20170830
  Serious: Yes (Disabling)
  Sender: FDA-Public Use
  Company Number: None

PATIENT
  Age: 54 Year
  Sex: Female
  Weight: 74.25 kg

DRUGS (2)
  1. ORACEA [Concomitant]
     Active Substance: DOXYCYCLINE
  2. MIRVASO [Suspect]
     Active Substance: BRIMONIDINE TARTRATE
     Indication: ROSACEA
     Dosage: ?          QUANTITY:2 DROP(S);?
     Route: 061
     Dates: start: 20170411, end: 20170415

REACTIONS (4)
  - Dizziness [None]
  - Erythema [None]
  - Feeling abnormal [None]
  - Feeling hot [None]

NARRATIVE: CASE EVENT DATE: 20170415
